FAERS Safety Report 9459266 (Version 2)
Quarter: 2013Q3

REPORT INFORMATION
  Report Type: Spontaneous
  Country: RO (occurrence: RO)
  Receive Date: 20130815
  Receipt Date: 20130829
  Transmission Date: 20140515
  Serious: Yes (Hospitalization)
  Sender: FDA-Public Use
  Company Number: RO-MERCK-1308ROM003432

PATIENT
  Age: 39 Year
  Sex: Male
  Weight: 80 kg

DRUGS (6)
  1. AERIUS [Suspect]
     Indication: ALLERGIC SINUSITIS
     Dosage: 5 MG, QD
     Route: 048
     Dates: start: 20130731, end: 20130801
  2. AERIUS [Interacting]
     Dosage: 5 MG, QD
     Route: 048
     Dates: start: 20130804, end: 20130805
  3. TUSSIN FORTE [Interacting]
     Indication: COUGH
     Dosage: 1 IN THE MORNING- 1 IN THE AFTERNOON- 1 IN THE EVENING
     Route: 048
     Dates: start: 20130731, end: 20130801
  4. TUSSIN FORTE [Interacting]
     Dosage: UNK
     Route: 048
     Dates: start: 20130804, end: 20130805
  5. PIROXICAM [Concomitant]
     Indication: UPPER RESPIRATORY TRACT INFECTION
     Dosage: UNK, QD
     Route: 048
     Dates: start: 20130801, end: 20130803
  6. BECLOMETHASONE DIPROPIONATE [Concomitant]
     Indication: RHINITIS
     Dosage: 1 DF, BID
     Route: 045
     Dates: start: 20130801, end: 20130803

REACTIONS (6)
  - Chest discomfort [Recovered/Resolved]
  - Hypoaesthesia [Recovered/Resolved]
  - Drug interaction [Recovered/Resolved]
  - Drug interaction [Recovered/Resolved]
  - Chest discomfort [Recovered/Resolved]
  - Hypoaesthesia [Recovered/Resolved]
